FAERS Safety Report 7998618-2 (Version None)
Quarter: 2011Q4

REPORT INFORMATION
  Report Type: 
  Country: None (occurrence: None)
  Receive Date: 20111221
  Receipt Date: 20111214
  Transmission Date: 20120403
  Serious: Yes (Hospitalization)
  Sender: FDA-Public Use
  Company Number: PHHY2011AR109035

PATIENT
  Age: 59 Year
  Sex: Female

DRUGS (1)
  1. LEVOFLOXACIN [Suspect]
     Dosage: UNK UKN, UNK

REACTIONS (7)
  - CHEST PAIN [None]
  - DIARRHOEA [None]
  - CHILLS [None]
  - PYREXIA [None]
  - ELECTROCARDIOGRAM QT PROLONGED [None]
  - PAIN [None]
  - HYPOKALAEMIA [None]
